FAERS Safety Report 8420967-4 (Version None)
Quarter: 2012Q2

REPORT INFORMATION
  Report Type: 
  Country: None (occurrence: None)
  Receive Date: 20120608
  Receipt Date: 20120604
  Transmission Date: 20120825
  Serious: Yes (Other)
  Sender: FDA-Public Use
  Company Number: US-PFIZER INC-2012134105

PATIENT
  Sex: Female
  Weight: 84 kg

DRUGS (6)
  1. CYMBALTA [Concomitant]
     Dosage: UNK
  2. MICARDIS [Concomitant]
     Indication: HYPERTENSION
     Dosage: UNK
  3. LIPITOR [Suspect]
     Indication: BLOOD CHOLESTEROL INCREASED
     Dosage: 40 MG, 1X/DAY
     Route: 048
     Dates: start: 20110201
  4. TRAMADOL [Concomitant]
     Dosage: UNK
  5. ZOLOFT [Concomitant]
     Dosage: UNK
  6. ACETYLSALICYLIC ACID/CARISOPRODOL [Concomitant]
     Dosage: UNK

REACTIONS (1)
  - WEIGHT DECREASED [None]
